FAERS Safety Report 8478887-5 (Version None)
Quarter: 2012Q2

REPORT INFORMATION
  Report Type: 
  Country: None (occurrence: None)
  Receive Date: 20120629
  Receipt Date: 20120618
  Transmission Date: 20120825
  Serious: Yes (Hospitalization)
  Sender: FDA-Public Use
  Company Number: FR-PFIZER INC-FR-WYE-H11569709

PATIENT
  Age: 80 Year
  Sex: Female

DRUGS (18)
  1. HYDROCORTISONE [Suspect]
     Indication: ADDISON'S DISEASE
     Dosage: 20 MG, UNK
     Route: 048
     Dates: start: 20090819, end: 20090904
  2. FELODIPINE [Concomitant]
     Dosage: 5 MG, UNK
     Dates: start: 20090829
  3. KETOPROFEN [Concomitant]
     Dosage: UNK
     Dates: end: 20090801
  4. NEXIUM [Suspect]
     Dosage: 40 MG, UNK
     Route: 048
     Dates: start: 20090820, end: 20090829
  5. BISOPROLOL FUMARATE [Suspect]
     Dosage: 1.25 MG, UNK
     Route: 048
     Dates: start: 20090825
  6. RAMIPRIL [Concomitant]
     Dosage: UNK
     Dates: end: 20090801
  7. HALDOL [Suspect]
     Dosage: 5 GTT, UNK
     Route: 048
     Dates: start: 20090822, end: 20090826
  8. KETOPROFEN [Concomitant]
     Dosage: UNK
     Dates: start: 20090829
  9. COLCHICINE [Concomitant]
     Dosage: UNK
     Dates: end: 20090801
  10. PANTOPRAZOLE SODIUM [Suspect]
     Dosage: UNK
     Route: 048
     Dates: start: 20090830, end: 20090907
  11. PLAVIX [Suspect]
     Dosage: 75 MG, UNK
     Route: 048
     Dates: start: 20090819, end: 20090910
  12. RAMIPRIL [Concomitant]
     Dosage: 5 MG, UNK
     Dates: start: 20090829
  13. COLCHICINE [Concomitant]
     Dosage: UNK
     Dates: start: 20090829
  14. ASPIRIN [Suspect]
     Dosage: 100 MG, UNK
     Route: 048
     Dates: start: 20090819
  15. VALIUM [Concomitant]
     Dosage: UNK
     Dates: end: 20090801
  16. LASIX [Suspect]
     Dosage: UNK
     Route: 048
     Dates: start: 20090819, end: 20090829
  17. VALIUM [Concomitant]
     Dosage: UNK
     Dates: start: 20090829
  18. FELODIPINE [Concomitant]
     Dosage: UNK
     Route: 065
     Dates: end: 20090801

REACTIONS (2)
  - LEUKOCYTOCLASTIC VASCULITIS [None]
  - VASCULAR PURPURA [None]
